FAERS Safety Report 19055485 (Version 1)
Quarter: 2021Q1

REPORT INFORMATION
  Report Type: Spontaneous
  Country: CA (occurrence: CA)
  Receive Date: 20210324
  Receipt Date: 20210324
  Transmission Date: 20210420
  Serious: Yes (Disabling)
  Sender: FDA-Public Use
  Company Number: CA-009507513-2103CAN006267

PATIENT
  Age: 78 Year
  Sex: Female
  Weight: 55 kg

DRUGS (2)
  1. ONCOTICE [Suspect]
     Active Substance: BACILLUS CALMETTE-GUERIN SUBSTRAIN TICE LIVE ANTIGEN
     Indication: BLADDER CANCER
     Dosage: 1 EVERY 1 WEEK
     Route: 043
  2. NIVOLUMAB [Concomitant]
     Active Substance: NIVOLUMAB
     Dosage: DOSAGE FORM: SOLUTION INTRAVENOUS

REACTIONS (4)
  - Pyrexia [Unknown]
  - Red blood cell sedimentation rate increased [Unknown]
  - Myalgia [Unknown]
  - Arthralgia [Unknown]
